FAERS Safety Report 8180549-9 (Version None)
Quarter: 2012Q1

REPORT INFORMATION
  Report Type: 
  Country: None (occurrence: None)
  Receive Date: 20120302
  Receipt Date: 20120222
  Transmission Date: 20120608
  Serious: No
  Sender: FDA-Public Use
  Company Number: US-JNJFOC-20120212584

PATIENT
  Age: 22 Year
  Sex: Female
  Weight: 65.77 kg

DRUGS (5)
  1. INVEGA SUSTENNA [Suspect]
     Indication: AUTISM
     Route: 030
     Dates: start: 20120131
  2. DESYREL (TRAZADONE HCL) [Concomitant]
     Indication: SLEEP DISORDER THERAPY
     Route: 048
  3. INVEGA SUSTENNA [Suspect]
     Indication: BIPOLAR DISORDER
     Route: 030
     Dates: start: 20120131
  4. TEGRETOL [Concomitant]
     Indication: AUTISM
     Route: 048
  5. INVEGA SUSTENNA [Suspect]
     Indication: INTENTIONAL SELF-INJURY
     Route: 030
     Dates: start: 20120131

REACTIONS (1)
  - INAPPROPRIATE SCHEDULE OF DRUG ADMINISTRATION [None]
